FAERS Safety Report 8506568-8 (Version None)
Quarter: 2012Q3

REPORT INFORMATION
  Report Type: 
  Country: None (occurrence: None)
  Receive Date: 20120712
  Receipt Date: 20120710
  Transmission Date: 20120928
  Serious: No
  Sender: FDA-Public Use
  Company Number: US-B.I. PHARMACEUTICALS,INC./RIDGEFIELD-2012-BP-15375BP

PATIENT
  Sex: Male

DRUGS (8)
  1. ASPIRIN [Concomitant]
     Dosage: 81 MG
     Route: 048
  2. CARVEDILOL [Concomitant]
     Dosage: 12.5 MG
     Route: 048
  3. PRAVASTATIN [Concomitant]
     Indication: BLOOD CHOLESTEROL INCREASED
     Dosage: 40 MG
     Route: 048
  4. KLOR-CON [Concomitant]
     Indication: SUPPLEMENTATION THERAPY
     Dosage: 40 MEQ
     Route: 048
  5. FUROSEMIDE [Concomitant]
     Indication: HYPERTENSION
  6. ASCORBIC ACID [Concomitant]
  7. PRADAXA [Suspect]
     Indication: ANTICOAGULANT THERAPY
     Dosage: 300 MG
     Route: 048
     Dates: start: 20110401
  8. SPIRONOLACTONE [Concomitant]
     Dosage: 25 MG
     Route: 048

REACTIONS (2)
  - DYSPEPSIA [None]
  - INSOMNIA [None]
